FAERS Safety Report 19058445 (Version 2)
Quarter: 2021Q3

REPORT INFORMATION
  Report Type: Report from Study
  Country: US (occurrence: US)
  Receive Date: 20210325
  Receipt Date: 20210901
  Transmission Date: 20211014
  Serious: Yes (Hospitalization, Other)
  Sender: FDA-Public Use
  Company Number: US-TAKEDA-US-002513

PATIENT
  Age: 48 Year
  Sex: Male
  Weight: 58.5 kg

DRUGS (21)
  1. TEDUGLUTIDE [Suspect]
     Active Substance: TEDUGLUTIDE
     Indication: SHORT-BOWEL SYNDROME
     Dosage: 2.5 MG, 1X/DAY:QD
     Route: 058
     Dates: start: 20131203, end: 20141112
  2. TEDUGLUTIDE [Suspect]
     Active Substance: TEDUGLUTIDE
     Indication: SHORT-BOWEL SYNDROME
     Dosage: 2.5 MG, 1X/DAY:QD
     Route: 058
     Dates: start: 20131203, end: 20141112
  3. TEDUGLUTIDE [Suspect]
     Active Substance: TEDUGLUTIDE
     Dosage: 1.6 MG, 1X/DAY:QD
     Route: 058
     Dates: start: 20141113, end: 201501
  4. VITAMIN B12 [Concomitant]
     Active Substance: CYANOCOBALAMIN
     Indication: SHORT-BOWEL SYNDROME
     Route: 058
     Dates: start: 2011
  5. HYDROMORPHONE [Concomitant]
     Active Substance: HYDROMORPHONE
     Indication: CROHN^S DISEASE
     Dosage: AS NECESSARY
     Route: 048
     Dates: start: 20090812
  6. CIMZIA [Concomitant]
     Active Substance: CERTOLIZUMAB PEGOL
     Indication: CROHN^S DISEASE
     Dosage: 400 MG ONCE A MONTH
     Route: 058
     Dates: start: 20141121
  7. TEDUGLUTIDE [Suspect]
     Active Substance: TEDUGLUTIDE
     Dosage: 1.6 MG, 1X/DAY:QD
     Route: 058
     Dates: start: 20141113, end: 201501
  8. LOVENOX [Concomitant]
     Active Substance: ENOXAPARIN SODIUM
     Indication: ANTICOAGULANT THERAPY
     Dosage: 60 MILLIGRAM
     Route: 058
     Dates: start: 20090812
  9. FENTANYL. [Concomitant]
     Active Substance: FENTANYL
     Indication: CROHN^S DISEASE
     Route: 062
     Dates: start: 2008
  10. CHOLECALCIFEROL [Concomitant]
     Active Substance: CHOLECALCIFEROL
     Indication: SHORT-BOWEL SYNDROME
     Dosage: 1 TAB QD ? ONCE A DAY
     Route: 048
     Dates: start: 20150108
  11. LIPIDS NOS;PROTEINS NOS;VITAMINS NOS [Concomitant]
     Indication: MEDICAL DIET
     Dosage: [9.36 LITERS OVER 6 DAYS EVERY WEEK]
     Dates: start: 20131126
  12. VITAMIN D NOS [Concomitant]
     Active Substance: VITAMIN D NOS
     Indication: CROHN^S DISEASE
     Dosage: 2000 INTERNATIONAL UNIT
     Route: 048
     Dates: start: 20140125
  13. RIFAMPIN. [Concomitant]
     Active Substance: RIFAMPIN
     Indication: VASCULAR DEVICE INFECTION
     Dosage: 600 MILLIGRAM
     Route: 048
     Dates: start: 20120217
  14. TEDUGLUTIDE [Suspect]
     Active Substance: TEDUGLUTIDE
     Dosage: 1.6 MG, 1X/DAY:QD
     Route: 058
     Dates: start: 20141113, end: 201501
  15. TEDUGLUTIDE [Suspect]
     Active Substance: TEDUGLUTIDE
     Indication: SHORT-BOWEL SYNDROME
     Dosage: 2.5 MG, 1X/DAY:QD
     Route: 058
     Dates: start: 20131203, end: 20141112
  16. MAGNESIUM SULFATE. [Concomitant]
     Active Substance: MAGNESIUM SULFATE
     Indication: SHORT-BOWEL SYNDROME
     Dosage: 2 GRAM PRN ? AS NECESSARY
     Route: 042
     Dates: start: 201405
  17. TEDUGLUTIDE [Suspect]
     Active Substance: TEDUGLUTIDE
     Indication: SHORT-BOWEL SYNDROME
     Dosage: 2.5 MG, 1X/DAY:QD
     Route: 058
     Dates: start: 20131203, end: 20141112
  18. TEDUGLUTIDE [Suspect]
     Active Substance: TEDUGLUTIDE
     Dosage: 1.6 MG, 1X/DAY:QD
     Route: 058
     Dates: start: 20141113, end: 201501
  19. DAPTOMYCIN. [Concomitant]
     Active Substance: DAPTOMYCIN
     Indication: BACTERAEMIA
     Dosage: 410 MILLIGRAM
     Route: 042
     Dates: start: 20080827
  20. NYSTATIN. [Concomitant]
     Active Substance: NYSTATIN
     Indication: ANTIFUNGAL PROPHYLAXIS
     Dosage: 1 INTERNATIONAL UNIT
     Route: 061
     Dates: start: 20111116
  21. TUMS [Concomitant]
     Active Substance: CALCIUM CARBONATE
     Indication: SHORT-BOWEL SYNDROME
     Dosage: 1 TAB TID ? THREE TIMES A DAY
     Route: 048
     Dates: start: 20141113

REACTIONS (4)
  - Haemorrhage subcutaneous [Recovered/Resolved]
  - Enterocutaneous fistula [Recovered/Resolved with Sequelae]
  - Haematoma [Recovered/Resolved]
  - Renal tubular necrosis [Recovered/Resolved]

NARRATIVE: CASE EVENT DATE: 20150129
